FAERS Safety Report 25954466 (Version 1)
Quarter: 2025Q4

REPORT INFORMATION
  Report Type: Spontaneous
  Country: US (occurrence: US)
  Receive Date: 20251024
  Receipt Date: 20251024
  Transmission Date: 20260117
  Serious: No
  Sender: ALEXION PHARMACEUTICALS
  Company Number: US-ASTRAZENECA-202510GLO021115US

PATIENT

DRUGS (1)
  1. SYMLIN [Suspect]
     Active Substance: PRAMLINTIDE ACETATE
     Dosage: UNK
     Route: 065

REACTIONS (1)
  - Device defective [Unknown]
